FAERS Safety Report 8169852-6 (Version None)
Quarter: 2012Q1

REPORT INFORMATION
  Report Type: 
  Country: None (occurrence: None)
  Receive Date: 20120228
  Receipt Date: 20120222
  Transmission Date: 20120608
  Serious: Yes (Other)
  Sender: FDA-Public Use
  Company Number: US-BAYER-2011-091657

PATIENT
  Age: 47 Year
  Sex: Male
  Weight: 75.9 kg

DRUGS (16)
  1. ASPIRIN [Concomitant]
     Dosage: 325 MG, QD
     Route: 048
  2. MDX-010 [Suspect]
     Indication: MALIGNANT MELANOMA
     Dosage: 10 MG/KG, QD DAY 1 OF 21 DAY CYCLE
     Route: 042
     Dates: start: 20110715, end: 20110715
  3. SARGRAMOSTIM [Suspect]
     Dosage: 250 ?G, QD DAYS 1-14 OF 21 DAY CYCLE
     Route: 058
     Dates: start: 20110826, end: 20110908
  4. SIMVASTATIN [Concomitant]
     Dosage: 40 MG, QD
     Route: 048
  5. LOVAZA [Concomitant]
     Dosage: 1 DF, QD
     Route: 048
  6. MDX-010 [Suspect]
     Dosage: 10 MG/KG, QD DAY 1 OF 21 DAY CYCLE
     Route: 042
     Dates: start: 20111216, end: 20111216
  7. VICODIN [Concomitant]
  8. GRANISETRON [Concomitant]
     Dosage: 1 DF, Q12H PRN
     Route: 048
  9. COMPAZINE [Concomitant]
     Indication: NAUSEA
     Dosage: 10 MG, Q8H PRN
     Route: 048
  10. VICODIN [Concomitant]
     Indication: PAIN
     Dosage: 5 MG-500 MG, 2 TABLETS Q4H PRN
     Route: 048
  11. SARGRAMOSTIM [Suspect]
     Indication: MALIGNANT MELANOMA
     Dosage: 250 ?G, QD DAYS 1-14 OF 21 DAY CYCLE
     Route: 058
     Dates: start: 20110715
  12. MDX-010 [Suspect]
     Dosage: 10 MG/KG, QD DAY 1 OF 21 DAY CYCLE
     Route: 042
     Dates: start: 20110826, end: 20110826
  13. CIALIS [Concomitant]
     Dosage: 10 MG, PRN
     Route: 048
  14. SARGRAMOSTIM [Suspect]
     Dosage: 125 ?G, QD DAYS 1-14 OF 21 DAY CYCLE
     Route: 058
     Dates: end: 20120119
  15. SARGRAMOSTIM [Suspect]
     Dosage: 125 ?G, QD DAYS 1-14 OF 21 DAY CYCLE
     Route: 058
     Dates: start: 20110923
  16. COLECALCIFEROL [Concomitant]
     Dosage: 5000 U, QD
     Route: 048

REACTIONS (15)
  - MYALGIA [None]
  - ALANINE AMINOTRANSFERASE INCREASED [None]
  - INJECTION SITE REACTION [None]
  - HYPERKALAEMIA [None]
  - BLOOD ALKALINE PHOSPHATASE INCREASED [None]
  - SINUS HEADACHE [None]
  - MUSCULAR WEAKNESS [None]
  - RED BLOOD CELL SEDIMENTATION RATE INCREASED [None]
  - HYPERCALCAEMIA [None]
  - OSTEONECROSIS [None]
  - HEADACHE [None]
  - ASPARTATE AMINOTRANSFERASE INCREASED [None]
  - LIPASE INCREASED [None]
  - FATIGUE [None]
  - C-REACTIVE PROTEIN INCREASED [None]
